FAERS Safety Report 6361882-X (Version None)
Quarter: 2009Q3

REPORT INFORMATION
  Report Type: 
  Country: None (occurrence: None)
  Receive Date: 20090918
  Receipt Date: 20090907
  Transmission Date: 20100115
  Serious: Yes (Hospitalization)
  Sender: FDA-Public Use
  Company Number: BE-ELI_LILLY_AND_COMPANY-BE200907001703

PATIENT
  Sex: Male
  Weight: 62 kg

DRUGS (5)
  1. CYMBALTA [Suspect]
     Indication: DEPRESSION
     Dosage: 60 MG, DAILY (1/D)
     Route: 048
     Dates: start: 20090301, end: 20090703
  2. SIFROL [Interacting]
     Indication: RESTLESS LEGS SYNDROME
     Dosage: 1 D/F, DAILY (1/D)
     Dates: start: 20080101
  3. AMLODIPINE [Concomitant]
     Dosage: 5 MG, DAILY (1/D)
     Route: 065
     Dates: start: 20070101
  4. OMEPRAZOLE [Concomitant]
     Indication: OESOPHAGITIS
     Dosage: 20 MG, DAILY (1/D)
     Dates: start: 20060101
  5. COVERSYL [Concomitant]
     Dosage: UNK, UNKNOWN
     Route: 065

REACTIONS (2)
  - DRUG INTERACTION [None]
  - SUPRAVENTRICULAR TACHYCARDIA [None]
